FAERS Safety Report 6154533-0 (Version None)
Quarter: 2009Q2

REPORT INFORMATION
  Report Type: 
  Country: None (occurrence: None)
  Receive Date: 20090410
  Receipt Date: 20090410
  Transmission Date: 20091009
  Serious: No
  Sender: FDA-Public Use
  Company Number: None

PATIENT

DRUGS (1)
  1. OPTIRAY 350 [Suspect]
     Indication: COMPUTERISED TOMOGRAM
     Dosage: 100ML ONE TIME INJ
     Dates: start: 20090409, end: 20090409

REACTIONS (2)
  - DEVICE BREAKAGE [None]
  - MEDICAL DEVICE COMPLICATION [None]
